FAERS Safety Report 6689771-1 (Version None)
Quarter: 2010Q2

REPORT INFORMATION
  Report Type: 
  Country: None (occurrence: None)
  Receive Date: 20100421
  Receipt Date: 20100410
  Transmission Date: 20101027
  Serious: Yes (Other)
  Sender: FDA-Public Use
  Company Number: CA-JNJFOC-20100404139

PATIENT
  Sex: Male
  Weight: 66 kg

DRUGS (2)
  1. REMICADE [Suspect]
     Indication: RHEUMATOID ARTHRITIS
     Dosage: HAD RECEIVED 4 INFUSIONS
     Route: 042
  2. REMICADE [Suspect]
     Dosage: RECEIVED 16 WEEKS AFTER LAST INFUSION
     Route: 042

REACTIONS (6)
  - CHEST DISCOMFORT [None]
  - CHILLS [None]
  - FLUSHING [None]
  - HYPOTENSION [None]
  - INFUSION RELATED REACTION [None]
  - SHOULDER OPERATION [None]
